FAERS Safety Report 9185291 (Version 1)
Quarter: 2013Q1

REPORT INFORMATION
  Report Type: Spontaneous
  Country: GB (occurrence: GB)
  Receive Date: 20130325
  Receipt Date: 20130325
  Transmission Date: 20140127
  Serious: Yes (Hospitalization)
  Sender: FDA-Public Use
  Company Number: PHFR2013GB001759

PATIENT
  Sex: Male

DRUGS (2)
  1. CLOZARIL [Suspect]
     Indication: SCHIZOPHRENIA
     Dosage: UNK UKN, UNK
     Dates: start: 20010701
  2. CLOZARIL [Suspect]
     Dosage: UNK UKN, UNK

REACTIONS (8)
  - Catatonia [Not Recovered/Not Resolved]
  - Dehydration [Recovering/Resolving]
  - Blood pressure fluctuation [Not Recovered/Not Resolved]
  - Confusional state [Not Recovered/Not Resolved]
  - Schizophrenia [Recovered/Resolved]
  - Diarrhoea [Not Recovered/Not Resolved]
  - Agitation [Not Recovered/Not Resolved]
  - Urinary incontinence [Not Recovered/Not Resolved]
